FAERS Safety Report 6504114-1 (Version None)
Quarter: 2009Q4

REPORT INFORMATION
  Report Type: 
  Country: None (occurrence: None)
  Receive Date: 20091217
  Receipt Date: 20091207
  Transmission Date: 20100525
  Serious: Yes (Other)
  Sender: FDA-Public Use
  Company Number: GB-ABBOTT-09P-167-0613839-00

PATIENT
  Age: 71 Year
  Sex: Male

DRUGS (4)
  1. PROSTAP 3 [Suspect]
     Indication: PROSTATE CANCER METASTATIC
     Dates: start: 20090101
  2. PAMIDRONATE DISODIUM [Concomitant]
     Indication: OSTEOPOROSIS
  3. ANTIHYPERTENSIVES [Concomitant]
     Indication: DRUG USE FOR UNKNOWN INDICATION
  4. STATIN [Concomitant]
     Indication: DRUG USE FOR UNKNOWN INDICATION

REACTIONS (2)
  - HYPERTRICHOSIS [None]
  - PROSTATIC SPECIFIC ANTIGEN INCREASED [None]
